FAERS Safety Report 20628310 (Version 2)
Quarter: 2022Q4

REPORT INFORMATION
  Report Type: Other
  Country: CA (occurrence: CA)
  Receive Date: 20220323
  Receipt Date: 20221117
  Transmission Date: 20230112
  Serious: Yes (Other)
  Sender: FDA-Public Use
  Company Number: CA-ROCHE-3053617

PATIENT
  Age: 24 Year
  Sex: Female

DRUGS (10)
  1. XOLAIR [Suspect]
     Active Substance: OMALIZUMAB
     Indication: Chronic spontaneous urticaria
     Route: 058
     Dates: start: 20150810
  2. XOLAIR [Suspect]
     Active Substance: OMALIZUMAB
     Route: 058
     Dates: start: 20160912
  3. XOLAIR [Suspect]
     Active Substance: OMALIZUMAB
     Dosage: UNK
     Route: 058
     Dates: start: 20161205
  4. XOLAIR [Suspect]
     Active Substance: OMALIZUMAB
     Dosage: UNK
     Route: 058
     Dates: start: 20170103
  5. XOLAIR [Suspect]
     Active Substance: OMALIZUMAB
     Route: 058
  6. XOLAIR [Suspect]
     Active Substance: OMALIZUMAB
     Dosage: UNK
     Route: 058
     Dates: start: 20170918
  7. XOLAIR [Suspect]
     Active Substance: OMALIZUMAB
     Route: 058
     Dates: start: 20180725
  8. XOLAIR [Suspect]
     Active Substance: OMALIZUMAB
     Route: 058
  9. XOLAIR [Suspect]
     Active Substance: OMALIZUMAB
     Route: 058
  10. SYNTHROID [Concomitant]
     Active Substance: LEVOTHYROXINE SODIUM
     Indication: Product used for unknown indication
     Dosage: 0.75 MG, QD (SINCE 1 WEEK AND A HALF)
     Route: 065
     Dates: start: 201602

REACTIONS (26)
  - Seasonal allergy [Unknown]
  - Loss of consciousness [Recovered/Resolved]
  - Hypersensitivity [Unknown]
  - Alcohol intolerance [Unknown]
  - Erythema [Not Recovered/Not Resolved]
  - Skin wound [Unknown]
  - Allergy to animal [Unknown]
  - Insomnia [Unknown]
  - Sensitivity to weather change [Unknown]
  - Hypotension [Recovered/Resolved]
  - Pain of skin [Unknown]
  - Skin disorder [Recovered/Resolved]
  - Urticaria [Unknown]
  - Skin plaque [Unknown]
  - Skin discomfort [Unknown]
  - Skin irritation [Not Recovered/Not Resolved]
  - Urticaria thermal [Unknown]
  - Memory impairment [Unknown]
  - Pain [Unknown]
  - Pruritus [Unknown]
  - Eczema [Unknown]
  - Stress [Unknown]
  - Exposure to toxic agent [Unknown]
  - Drug ineffective [Unknown]
  - Fatigue [Recovering/Resolving]
  - Papule [Unknown]

NARRATIVE: CASE EVENT DATE: 20150903
